FAERS Safety Report 5428992-2 (Version None)
Quarter: 2007Q3

REPORT INFORMATION
  Report Type: 
  Country: None (occurrence: None)
  Receive Date: 20070827
  Receipt Date: 20070821
  Transmission Date: 20080115
  Serious: Yes (Death, Life-Threatening)
  Sender: FDA-Public Use
  Company Number: 2007SP016460

PATIENT
  Age: 74 Year
  Sex: Male
  Weight: 52 kg

DRUGS (9)
  1. TEMODAL [Suspect]
     Indication: GLIOBLASTOMA MULTIFORME
     Dosage: 100 MG;QD; PO;  220 MG;QD; PO ;  300 MG;QD; PO
     Route: 048
     Dates: start: 20061017, end: 20061121
  2. TEMODAL [Suspect]
     Indication: GLIOBLASTOMA MULTIFORME
     Dosage: 100 MG;QD; PO;  220 MG;QD; PO ;  300 MG;QD; PO
     Route: 048
     Dates: start: 20061220, end: 20061224
  3. TEMODAL [Suspect]
     Indication: GLIOBLASTOMA MULTIFORME
     Dosage: 100 MG;QD; PO;  220 MG;QD; PO ;  300 MG;QD; PO
     Route: 048
     Dates: start: 20070117, end: 20070121
  4. TEMODAL [Suspect]
     Indication: GLIOBLASTOMA MULTIFORME
     Dosage: 100 MG;QD; PO;  220 MG;QD; PO ;  300 MG;QD; PO
     Route: 048
     Dates: start: 20070214, end: 20070218
  5. SIGMART [Concomitant]
  6. SELBEX [Concomitant]
  7. METOPROLOL TARTRATE [Concomitant]
  8. FLIVAS [Concomitant]
  9. PHENYTOIN SODIUM CAP [Concomitant]

REACTIONS (5)
  - CARDIAC FAILURE [None]
  - CONVULSION [None]
  - DEEP VEIN THROMBOSIS [None]
  - DISEASE PROGRESSION [None]
  - VENA CAVA THROMBOSIS [None]
